FAERS Safety Report 14167934 (Version 2)
Quarter: 2018Q2

REPORT INFORMATION
  Report Type: Spontaneous
  Country: US (occurrence: US)
  Receive Date: 20171107
  Receipt Date: 20180515
  Transmission Date: 20180711
  Serious: No
  Sender: FDA-Public Use
  Company Number: US-SA-2017SA149782

PATIENT
  Age: 60 Year
  Sex: Male

DRUGS (10)
  1. TOUJEO [Suspect]
     Active Substance: INSULIN GLARGINE
     Indication: TYPE 1 DIABETES MELLITUS
     Dosage: DOSE:8 UNIT(S)
     Route: 051
     Dates: start: 2017, end: 2017
  2. HUMULIN N [Concomitant]
     Active Substance: INSULIN HUMAN
     Route: 065
  3. TOUJEO [Suspect]
     Active Substance: INSULIN GLARGINE
     Indication: TYPE 1 DIABETES MELLITUS
     Dosage: DOSE:3 UNIT(S)
     Route: 051
     Dates: start: 201705
  4. SOLOSTAR [Suspect]
     Active Substance: DEVICE
     Indication: TYPE 1 DIABETES MELLITUS
     Dates: start: 2017, end: 2017
  5. SOLOSTAR [Suspect]
     Active Substance: DEVICE
     Indication: TYPE 1 DIABETES MELLITUS
     Dates: start: 2017, end: 2017
  6. TOUJEO [Suspect]
     Active Substance: INSULIN GLARGINE
     Indication: TYPE 1 DIABETES MELLITUS
     Dosage: DOSE:10 UNIT(S)
     Route: 051
     Dates: start: 2017, end: 2017
  7. HUMALOG [Concomitant]
     Active Substance: INSULIN LISPRO
     Dosage: A SLIDING SCALE OF HUMALOG WITH MEALS, 5-15 UNITS.
     Route: 065
  8. SOLOSTAR [Suspect]
     Active Substance: DEVICE
     Indication: TYPE 1 DIABETES MELLITUS
     Dates: start: 201705
  9. SOLOSTAR [Suspect]
     Active Substance: DEVICE
     Indication: TYPE 1 DIABETES MELLITUS
     Dates: start: 2017
  10. TOUJEO [Suspect]
     Active Substance: INSULIN GLARGINE
     Indication: TYPE 1 DIABETES MELLITUS
     Dosage: DOSE:7 UNIT(S)
     Route: 051
     Dates: start: 2017

REACTIONS (9)
  - Presyncope [Unknown]
  - Chest pain [Unknown]
  - Peripheral swelling [Recovering/Resolving]
  - Intentional product misuse [Unknown]
  - Cardiac disorder [Unknown]
  - Peripheral swelling [Not Recovered/Not Resolved]
  - Dysphagia [Unknown]
  - Dizziness [Unknown]
  - Incorrect dose administered [Unknown]
